FAERS Safety Report 19101427 (Version 1)
Quarter: 2021Q2

REPORT INFORMATION
  Report Type: Report from Study
  Country: CA (occurrence: CA)
  Receive Date: 20210407
  Receipt Date: 20210407
  Transmission Date: 20210717
  Serious: Yes (Other)
  Sender: FDA-Public Use
  Company Number: CA-ORION CORPORATION ORION PHARMA-21_00013910

PATIENT
  Age: 57 Year
  Sex: Male

DRUGS (4)
  1. METHOTREXATE (TRADE NAME UNKNOWN) [Suspect]
     Active Substance: METHOTREXATE
     Indication: PRODUCT USED FOR UNKNOWN INDICATION
     Route: 048
  2. BETADERM A [Concomitant]
     Route: 061
  3. FOLIC ACID. [Suspect]
     Active Substance: FOLIC ACID
     Indication: PRODUCT USED FOR UNKNOWN INDICATION
     Route: 048
  4. FUSIDIC ACID [Concomitant]
     Active Substance: FUSIDIC ACID
     Route: 061

REACTIONS (11)
  - Pain in extremity [Unknown]
  - Skin plaque [Unknown]
  - Back pain [Unknown]
  - Skin haemorrhage [Unknown]
  - Disturbance in attention [Unknown]
  - Pain of skin [Unknown]
  - Drug ineffective [Unknown]
  - Haemorrhage [Unknown]
  - Skin fissures [Unknown]
  - Pain [Unknown]
  - Pruritus [Unknown]
